FAERS Safety Report 11882565 (Version 1)
Quarter: 2015Q4

REPORT INFORMATION
  Report Type: Report from Study
  Country: BR (occurrence: BR)
  Receive Date: 20151231
  Receipt Date: 20151231
  Transmission Date: 20160305
  Serious: Yes (Other)
  Sender: FDA-Public Use
  Company Number: BR-JNJFOC-20151222062

PATIENT

DRUGS (1)
  1. RISPERIDONE. [Suspect]
     Active Substance: RISPERIDONE
     Indication: SCHIZOPHRENIA
     Route: 065

REACTIONS (29)
  - Cognitive disorder [Unknown]
  - Sexual dysfunction [Unknown]
  - Social avoidant behaviour [Unknown]
  - Sleep disorder [Unknown]
  - Tremor [Unknown]
  - Hypersomnia [Unknown]
  - Refraction disorder [Unknown]
  - Fear [Unknown]
  - Disturbance in attention [Unknown]
  - Drug ineffective [Unknown]
  - Hallucination [Unknown]
  - Aggression [Unknown]
  - Apathy [Unknown]
  - Somatisation disorder [Unknown]
  - Delirium [Unknown]
  - Flat affect [Unknown]
  - Agitation [Unknown]
  - Poor personal hygiene [Unknown]
  - Weight increased [Unknown]
  - Personality disorder [Unknown]
  - Educational problem [Unknown]
  - Adverse event [Unknown]
  - Anxiety [Unknown]
  - Thinking abnormal [Unknown]
  - Drug effect decreased [Unknown]
  - Memory impairment [Unknown]
  - Decreased appetite [Unknown]
  - Learning disorder [Unknown]
  - Depressed mood [Unknown]
